FAERS Safety Report 26203823 (Version 1)
Quarter: 2025Q4

REPORT INFORMATION
  Report Type: Spontaneous
  Country: US (occurrence: US)
  Receive Date: 20251226
  Receipt Date: 20251226
  Transmission Date: 20260117
  Serious: Yes (Other)
  Sender: NOVO NORDISK
  Company Number: US-NOVOPROD-1588892

PATIENT
  Age: 38 Year

DRUGS (6)
  1. SAXENDA [Suspect]
     Active Substance: LIRAGLUTIDE
     Indication: Cardiovascular event prophylaxis
     Dosage: UNK
     Dates: start: 202001, end: 202003
  2. SAXENDA [Suspect]
     Active Substance: LIRAGLUTIDE
     Indication: Weight control
  3. WEGOVY [Suspect]
     Active Substance: SEMAGLUTIDE
     Indication: Cardiovascular event prophylaxis
     Dosage: UNK
     Dates: start: 202107, end: 202205
  4. WEGOVY [Suspect]
     Active Substance: SEMAGLUTIDE
     Indication: Weight control
     Dosage: UNK
     Dates: start: 202207, end: 202211
  5. OZEMPIC [Suspect]
     Active Substance: SEMAGLUTIDE
     Indication: Cardiovascular event prophylaxis
     Dosage: UNK
     Dates: start: 202205, end: 202207
  6. OZEMPIC [Suspect]
     Active Substance: SEMAGLUTIDE
     Indication: Weight control

REACTIONS (2)
  - Cyclic vomiting syndrome [Not Recovered/Not Resolved]
  - Emotional distress [Not Recovered/Not Resolved]
